FAERS Safety Report 9439756 (Version 1)
Quarter: 2013Q3

REPORT INFORMATION
  Report Type: Spontaneous
  Country: US (occurrence: None)
  Receive Date: 20130802
  Receipt Date: 20130802
  Transmission Date: 20140515
  Serious: No
  Sender: FDA-Public Use
  Company Number: None

PATIENT
  Age: 79 None
  Sex: Female

DRUGS (13)
  1. CYMBALTA [Suspect]
     Indication: RESTLESS LEGS SYNDROME
     Route: 048
     Dates: start: 20130129, end: 20130701
  2. CLOPIDOGREL [Concomitant]
  3. LISINOPRIL [Concomitant]
  4. METOPROLOL [Concomitant]
  5. ATORVASTATIN [Concomitant]
  6. LEVOTHYROXINE [Concomitant]
  7. MONTELUKAST [Concomitant]
  8. NASONEX [Concomitant]
  9. COMBVIENT [Concomitant]
  10. NITROSTATE [Concomitant]
  11. ROPINIROLE [Concomitant]
  12. BABY ASPIRIN [Concomitant]
  13. CENTRUM SILVER [Concomitant]

REACTIONS (6)
  - Night sweats [None]
  - Chills [None]
  - Hallucination [None]
  - Asthenia [None]
  - Pain [None]
  - Myocardial infarction [None]
